FAERS Safety Report 24197469 (Version 1)
Quarter: 2024Q3

REPORT INFORMATION
  Report Type: Spontaneous
  Country: US (occurrence: None)
  Receive Date: 20240811
  Receipt Date: 20240811
  Transmission Date: 20241017
  Serious: No
  Sender: ASTRAZENECA
  Company Number: 2024A174622

PATIENT
  Sex: Female
  Weight: 85.3 kg

DRUGS (1)
  1. TRUQAP [Suspect]
     Active Substance: CAPIVASERTIB
     Indication: Breast cancer female
     Route: 048
     Dates: start: 20240408

REACTIONS (4)
  - Diarrhoea [Unknown]
  - Spinal osteoarthritis [Unknown]
  - Product dose omission issue [Unknown]
  - Product dose omission in error [Unknown]
